FAERS Safety Report 13909515 (Version 1)
Quarter: 2017Q3

REPORT INFORMATION
  Report Type: Spontaneous
  Country: US (occurrence: US)
  Receive Date: 20170828
  Receipt Date: 20170828
  Transmission Date: 20171127
  Serious: Yes (Death)
  Sender: FDA-Public Use
  Company Number: US-ROCHE-1984417

PATIENT
  Age: 80 Year
  Sex: Male

DRUGS (1)
  1. XELODA [Suspect]
     Active Substance: CAPECITABINE
     Indication: PANCREATIC CARCINOMA
     Dosage: 2 TABS BID
     Route: 048
     Dates: start: 20170711, end: 20170721

REACTIONS (1)
  - Death [Fatal]

NARRATIVE: CASE EVENT DATE: 20170721
